FAERS Safety Report 7589773-7 (Version None)
Quarter: 2011Q3

REPORT INFORMATION
  Report Type: 
  Country: None (occurrence: None)
  Receive Date: 20110705
  Receipt Date: 20110620
  Transmission Date: 20111222
  Serious: Yes (Hospitalization)
  Sender: FDA-Public Use
  Company Number: HR-WATSON-2011-09731

PATIENT
  Age: 50 Year
  Sex: Male

DRUGS (2)
  1. FLUVOXAMINE MALEATE [Suspect]
     Indication: DEPRESSION
     Route: 048
  2. OLANZAPINE [Suspect]
     Indication: DEPRESSION
     Route: 048

REACTIONS (2)
  - AKATHISIA [None]
  - DRUG INTERACTION [None]
